FAERS Safety Report 6158055-2 (Version None)
Quarter: 2009Q2

REPORT INFORMATION
  Report Type: 
  Country: None (occurrence: None)
  Receive Date: 20090414
  Receipt Date: 20090414
  Transmission Date: 20091009
  Serious: No
  Sender: FDA-Public Use
  Company Number: None

PATIENT
  Age: 54 Year
  Sex: Female
  Weight: 129.2752 kg

DRUGS (2)
  1. GABAPENTIN [Suspect]
     Indication: LUMBAR RADICULOPATHY
     Dosage: TWICE TID MOUTH
     Route: 048
     Dates: start: 20090220, end: 20090406
  2. GABAPENTIN [Suspect]
     Indication: LUMBAR RADICULOPATHY
     Dosage: TWICE TID MOUTH
     Route: 048
     Dates: start: 20081101

REACTIONS (3)
  - DRUG INEFFECTIVE [None]
  - MUSCLE SPASMS [None]
  - THERAPEUTIC RESPONSE UNEXPECTED WITH DRUG SUBSTITUTION [None]
